FAERS Safety Report 12111271 (Version 1)
Quarter: 2016Q1

REPORT INFORMATION
  Report Type: Spontaneous
  Country: US (occurrence: US)
  Receive Date: 20160224
  Receipt Date: 20160224
  Transmission Date: 20160526
  Serious: Yes (Other)
  Sender: FDA-Public Use
  Company Number: US-DEP_13615_2016

PATIENT
  Age: 40 Year
  Sex: Male

DRUGS (4)
  1. NUCYNTA [Suspect]
     Active Substance: TAPENTADOL HYDROCHLORIDE
     Dosage: TITRATED OFF, DF
     Route: 048
     Dates: end: 2016
  2. NUCYNTA ER [Suspect]
     Active Substance: TAPENTADOL HYDROCHLORIDE
     Indication: PAIN
     Dosage: TITRATED OFF, DF
     Route: 048
     Dates: end: 2016
  3. NUCYNTA ER [Suspect]
     Active Substance: TAPENTADOL HYDROCHLORIDE
     Dosage: DURATION OVER 2 YEARS
     Route: 048
  4. NUCYNTA [Suspect]
     Active Substance: TAPENTADOL HYDROCHLORIDE
     Indication: PAIN
     Dosage: DURATION OVER 2 YEARS
     Route: 048

REACTIONS (5)
  - Road traffic accident [Unknown]
  - Off label use [Recovered/Resolved]
  - Somnambulism [Unknown]
  - Medication error [Recovered/Resolved]
  - Narcolepsy [Unknown]

NARRATIVE: CASE EVENT DATE: 201602
